FAERS Safety Report 18475731 (Version 1)
Quarter: 2020Q4

REPORT INFORMATION
  Report Type: Spontaneous
  Country: US (occurrence: US)
  Receive Date: 20201106
  Receipt Date: 20201106
  Transmission Date: 20210114
  Serious: Yes (Other)
  Sender: FDA-Public Use
  Company Number: US-PURDUE-USA-2020-0170293

PATIENT
  Sex: Male

DRUGS (1)
  1. OXYCONTIN [Suspect]
     Active Substance: OXYCODONE HYDROCHLORIDE
     Indication: PRODUCT USED FOR UNKNOWN INDICATION
     Dosage: UNK
     Route: 048

REACTIONS (11)
  - Delirium [Unknown]
  - Anger [Unknown]
  - Drug abuse [Unknown]
  - Fall [Not Recovered/Not Resolved]
  - Drug dependence [Unknown]
  - Dementia [Unknown]
  - Amnesia [Unknown]
  - Dizziness [Unknown]
  - Pain [Unknown]
  - Agitation [Unknown]
  - Cervical vertebral fracture [Not Recovered/Not Resolved]
